FAERS Safety Report 5830154-1 (Version None)
Quarter: 2008Q3

REPORT INFORMATION
  Report Type: 
  Country: None (occurrence: None)
  Receive Date: 20080801
  Receipt Date: 20080723
  Transmission Date: 20090109
  Serious: Yes (Hospitalization)
  Sender: FDA-Public Use
  Company Number: NL-AMGEN-US276162

PATIENT
  Age: 58 Year
  Sex: Male

DRUGS (2)
  1. ENBREL [Suspect]
     Indication: PSORIASIS
     Route: 058
     Dates: start: 20071228
  2. CEFUROXIME [Concomitant]
     Dosage: 250 MG
     Route: 065

REACTIONS (2)
  - ANGINA PECTORIS [None]
  - DYSPNOEA [None]
